FAERS Safety Report 17277256 (Version 2)
Quarter: 2020Q1

REPORT INFORMATION
  Report Type: Report from Study
  Country: CA (occurrence: CA)
  Receive Date: 20200116
  Receipt Date: 20200317
  Transmission Date: 20200409
  Serious: Yes (Death, Hospitalization)
  Sender: FDA-Public Use
  Company Number: CA-JNJFOC-20200112832

PATIENT
  Age: 68 Year
  Sex: Female
  Weight: 80 kg

DRUGS (1)
  1. REMICADE [Suspect]
     Active Substance: INFLIXIMAB
     Indication: CROHN^S DISEASE
     Dosage: 800 MG
     Route: 042
     Dates: start: 20151202, end: 20200108

REACTIONS (6)
  - Pelvic mass [Unknown]
  - Crohn^s disease [Unknown]
  - Hepato-lenticular degeneration [Unknown]
  - Ovarian cancer [Fatal]
  - Hepatic steatosis [Unknown]
  - Ascites [Unknown]

NARRATIVE: CASE EVENT DATE: 201912
